FAERS Safety Report 4284770-1 (Version None)
Quarter: 2004Q1

REPORT INFORMATION
  Report Type: 
  Country: None (occurrence: None)
  Receive Date: 20040202
  Receipt Date: 20040119
  Transmission Date: 20041129
  Serious: Yes (Life-Threatening, Hospitalization, Disabling)
  Sender: FDA-Public Use
  Company Number: 2003119176

PATIENT
  Age: 57 Year
  Sex: Male

DRUGS (3)
  1. VIAGRA [Suspect]
     Indication: ERECTILE DYSFUNCTION
     Dosage: 100 MG, ORAL
     Route: 048
     Dates: start: 20010401, end: 20010401
  2. ETHANOL (ETHANOL) [Concomitant]
  3. APOMORPHINE HYDROCHLORIDE (APOMORPHINE HYDROCHLORIDE) [Concomitant]

REACTIONS (4)
  - FATIGUE [None]
  - LOSS OF CONSCIOUSNESS [None]
  - POLLAKIURIA [None]
  - SUBARACHNOID HAEMORRHAGE [None]
